FAERS Safety Report 12668344 (Version 2)
Quarter: 2016Q3

REPORT INFORMATION
  Report Type: Spontaneous
  Country: US (occurrence: US)
  Receive Date: 20160819
  Receipt Date: 20160822
  Transmission Date: 20161109
  Serious: Yes (Death, Hospitalization)
  Sender: FDA-Public Use
  Company Number: US-PFIZER INC-2016392452

PATIENT
  Age: 67 Year
  Sex: Female
  Weight: 36.29 kg

DRUGS (1)
  1. LYRICA [Suspect]
     Active Substance: PREGABALIN
     Dosage: 200 MG, SINGLE (200MG AT ONE TIME)
     Dates: start: 20140531, end: 20140531

REACTIONS (8)
  - Fluid retention [Fatal]
  - Dyspnoea [Fatal]
  - Dyspnoea [Unknown]
  - Myocardial infarction [Unknown]
  - Chest pain [Unknown]
  - Wrong drug administered [Fatal]
  - Accidental overdose [Fatal]
  - Abnormal behaviour [Recovered/Resolved]

NARRATIVE: CASE EVENT DATE: 201405
